FAERS Safety Report 9154697 (Version 1)
Quarter: 2013Q1

REPORT INFORMATION
  Report Type: Spontaneous
  Country: US (occurrence: None)
  Receive Date: 20130305
  Receipt Date: 20130305
  Transmission Date: 20140127
  Serious: No
  Sender: FDA-Public Use
  Company Number: None

PATIENT
  Age: 73 Year
  Sex: Female
  Weight: 70.31 kg

DRUGS (1)
  1. BRIMONIDINE [Suspect]
     Indication: GLAUCOMA
     Route: 047
     Dates: start: 20121020, end: 20121127

REACTIONS (4)
  - Eye pruritus [None]
  - Ocular hyperaemia [None]
  - Dry eye [None]
  - Discomfort [None]
